FAERS Safety Report 22363353 (Version 4)
Quarter: 2023Q4

REPORT INFORMATION
  Report Type: Spontaneous
  Country: JP (occurrence: JP)
  Receive Date: 20230525
  Receipt Date: 20231108
  Transmission Date: 20240110
  Serious: Yes (Death)
  Sender: FDA-Public Use
  Company Number: JP-JNJFOC-20230556376

PATIENT
  Age: 62 Year
  Sex: Male

DRUGS (16)
  1. EDURANT [Suspect]
     Active Substance: RILPIVIRINE HYDROCHLORIDE
     Indication: HIV infection
     Route: 048
     Dates: start: 20150301, end: 20190314
  2. EDURANT [Suspect]
     Active Substance: RILPIVIRINE HYDROCHLORIDE
     Indication: HIV infection
     Route: 048
     Dates: start: 20220701, end: 20220707
  3. VOCABRIA [Concomitant]
     Active Substance: CABOTEGRAVIR SODIUM
     Indication: HIV infection
     Route: 048
     Dates: start: 20220701, end: 20220707
  4. VOCABRIA [Concomitant]
     Active Substance: CABOTEGRAVIR SODIUM
     Route: 030
     Dates: start: 20220707, end: 20220823
  5. TIVICAY [Concomitant]
     Active Substance: DOLUTEGRAVIR SODIUM
     Indication: HIV infection
     Route: 048
     Dates: start: 20150301, end: 20190314
  6. TIVICAY [Concomitant]
     Active Substance: DOLUTEGRAVIR SODIUM
     Indication: HIV infection
     Route: 048
     Dates: start: 20210312, end: 20210527
  7. JULUCA [Concomitant]
     Active Substance: DOLUTEGRAVIR SODIUM\RILPIVIRINE HYDROCHLORIDE
     Indication: HIV infection
     Route: 048
     Dates: start: 20190315, end: 20210311
  8. PIFELTRO [Concomitant]
     Active Substance: DORAVIRINE
     Indication: HIV infection
     Route: 048
     Dates: start: 20210312, end: 20210527
  9. BIKTARVY [Concomitant]
     Active Substance: BICTEGRAVIR SODIUM\EMTRICITABINE\TENOFOVIR ALAFENAMIDE FUMARATE
     Indication: HIV infection
     Route: 048
     Dates: start: 20210528, end: 20220630
  10. BEZAFIBRATE [Concomitant]
     Active Substance: BEZAFIBRATE
     Indication: Hyperlipidaemia
     Route: 048
     Dates: start: 20140401, end: 20220622
  11. BUCILLAMINE [Concomitant]
     Active Substance: BUCILLAMINE
     Indication: Rheumatoid arthritis
     Route: 048
     Dates: start: 20140401, end: 202206
  12. DIOVAN [Concomitant]
     Active Substance: VALSARTAN
     Indication: Hypertension
     Route: 048
     Dates: start: 20140401, end: 20210806
  13. JANUVIA [Concomitant]
     Active Substance: SITAGLIPTIN PHOSPHATE
     Indication: Diabetes mellitus
     Dosage: DOSE UNKNOWN
     Route: 048
     Dates: start: 20201120, end: 20211112
  14. ALLOPURINOL [Concomitant]
     Active Substance: ALLOPURINOL
     Indication: Hyperuricaemia
     Route: 048
     Dates: start: 20140401, end: 20210528
  15. AZULFIDINE EN-TABS [Concomitant]
     Active Substance: SULFASALAZINE
     Indication: Rheumatoid arthritis
     Route: 048
     Dates: start: 20141010, end: 202109
  16. RILPIVIRINE [Concomitant]
     Active Substance: RILPIVIRINE
     Indication: HIV infection
     Route: 030
     Dates: start: 20220707, end: 20220823

REACTIONS (1)
  - Oesophageal carcinoma [Fatal]
